FAERS Safety Report 6702809-8 (Version None)
Quarter: 2010Q2

REPORT INFORMATION
  Report Type: 
  Country: None (occurrence: None)
  Receive Date: 20100428
  Receipt Date: 20100415
  Transmission Date: 20101027
  Serious: Yes (Other)
  Sender: FDA-Public Use
  Company Number: 2010AP000584

PATIENT
  Age: 51 Year
  Sex: Male

DRUGS (5)
  1. LAMOTRIGINE [Suspect]
     Indication: BIPOLAR DISORDER
     Dosage: 200 MG;QD; PO
     Route: 048
     Dates: start: 20091101, end: 20100301
  2. DIPHENHYDRAMINE HCL [Concomitant]
  3. EMOLLIENTS AND PROTECTIVES (EMOLLIENTS AND PROTECTIVES) [Concomitant]
  4. QUETIAPINE (QUETIAPINE) [Concomitant]
  5. TRANYLCYPROMINE SULFATE [Concomitant]

REACTIONS (4)
  - DERMATITIS [None]
  - MOUTH ULCERATION [None]
  - NEUTROPENIA [None]
  - ORAL PAIN [None]
